FAERS Safety Report 7654359-2 (Version None)
Quarter: 2011Q3

REPORT INFORMATION
  Report Type: 
  Country: None (occurrence: None)
  Receive Date: 20110803
  Receipt Date: 20110729
  Transmission Date: 20111222
  Serious: Yes (Other)
  Sender: FDA-Public Use
  Company Number: US-PFIZER INC-2011146215

PATIENT
  Sex: Female

DRUGS (1)
  1. CHANTIX [Suspect]
     Dosage: UNK

REACTIONS (8)
  - CHEST DISCOMFORT [None]
  - MOOD ALTERED [None]
  - ANXIETY [None]
  - PANIC ATTACK [None]
  - ANGER [None]
  - SUICIDAL IDEATION [None]
  - RESTLESSNESS [None]
  - EMOTIONAL DISORDER [None]
